FAERS Safety Report 11590634 (Version 1)
Quarter: 2015Q4

REPORT INFORMATION
  Report Type: Spontaneous
  Country: EG (occurrence: EG)
  Receive Date: 20151002
  Receipt Date: 20151002
  Transmission Date: 20160304
  Serious: Yes (Death)
  Sender: FDA-Public Use
  Company Number: EG-NOVOPROD-461659

PATIENT
  Age: 54 Year
  Sex: Female

DRUGS (4)
  1. ENALAPRIL [Concomitant]
     Active Substance: ENALAPRIL
     Indication: HYPERTENSION
     Dosage: START DATE NOT REMEMBERED
     Route: 048
     Dates: end: 20150216
  2. MIXTARD HUMAN 70/30 [Suspect]
     Active Substance: INSULIN HUMAN
     Dosage: 90 IU, QD (60 UNITS/DAY AND 30 UNITS/NIGHT.)
     Route: 065
  3. MIXTARD 30 HM PENFILL [Suspect]
     Active Substance: INSULIN HUMAN
     Indication: DIABETES MELLITUS
     Dosage: 90 IU, QD (60IU/DAY + 30IU/NIGHT)
     Route: 065
  4. MIXTARD HUMAN 70/30 [Suspect]
     Active Substance: INSULIN HUMAN
     Indication: DIABETES MELLITUS
     Dosage: 60 IU, QD (40 UNITS/DAY AND 20 UNITS/NIGHT)
     Route: 065
     Dates: start: 201501

REACTIONS (2)
  - Diabetic coma [Fatal]
  - Diabetes mellitus inadequate control [Not Recovered/Not Resolved]
